FAERS Safety Report 8500584 (Version 2)
Quarter: 2013Q1

REPORT INFORMATION
  Report Type: Spontaneous
  Country: DE (occurrence: DE)
  Receive Date: 20120409
  Receipt Date: 20130102
  Transmission Date: 20140127
  Serious: Yes (Hospitalization)
  Sender: FDA-Public Use
  Company Number: DE-ROCHE-1005530

PATIENT
  Age: 38 Year
  Sex: Male
  Weight: 85 kg

DRUGS (11)
  1. MABTHERA [Suspect]
     Indication: B-CELL LYMPHOMA
     Route: 042
     Dates: start: 20110818, end: 20111001
  2. COPEGUS [Suspect]
     Indication: PRODUCT USED FOR UNKNOWN INDICATION
     Route: 065
  3. PANTOZOL [Concomitant]
     Route: 065
  4. PHENYTOIN [Concomitant]
     Route: 065
  5. AMLODIPINE [Concomitant]
     Route: 065
  6. RAMIPRIL [Concomitant]
     Route: 065
  7. HCTZ [Concomitant]
     Route: 065
  8. MIRTAZAPINE [Concomitant]
     Route: 065
  9. AMITRIPTYLINE [Concomitant]
     Route: 065
  10. TILIDINE [Concomitant]
     Route: 065
  11. TOREM [Concomitant]
     Route: 065

REACTIONS (3)
  - Progressive multifocal leukoencephalopathy [Not Recovered/Not Resolved]
  - Grand mal convulsion [Not Recovered/Not Resolved]
  - Grand mal convulsion [Not Recovered/Not Resolved]
